FAERS Safety Report 13195818 (Version 2)
Quarter: 2017Q3

REPORT INFORMATION
  Report Type: Report from Study
  Country: CA (occurrence: CA)
  Receive Date: 20170208
  Receipt Date: 20170911
  Transmission Date: 20171127
  Serious: Yes (Other)
  Sender: FDA-Public Use
  Company Number: PHHY2016CA022252

PATIENT
  Age: 8 Year
  Sex: Female
  Weight: 33.8 kg

DRUGS (3)
  1. DABRAFENIB [Suspect]
     Active Substance: DABRAFENIB
     Indication: METASTATIC MALIGNANT MELANOMA
     Dosage: UNK
     Route: 048
     Dates: start: 20151217
  2. TRAMETINIB [Suspect]
     Active Substance: TRAMETINIB
     Indication: OPTIC GLIOMA
     Dosage: 0.75 MG, QD
     Route: 048
     Dates: start: 20170718
  3. DABRAFENIB [Suspect]
     Active Substance: DABRAFENIB
     Dosage: UNK
     Route: 048
     Dates: start: 20160307, end: 20160420

REACTIONS (30)
  - Headache [Recovered/Resolved]
  - Pain in extremity [Recovered/Resolved]
  - Hypercalcaemia [Recovered/Resolved]
  - Alopecia [Unknown]
  - Abdominal pain [Recovered/Resolved]
  - Pyrexia [Recovered/Resolved]
  - Upper respiratory tract infection [Recovered/Resolved]
  - Hyperkinesia [Unknown]
  - Arthralgia [Unknown]
  - Neutropenia [Recovered/Resolved]
  - Eyelid oedema [Recovered/Resolved]
  - Hyperkeratosis [Recovered/Resolved]
  - Hypophosphataemia [Recovering/Resolving]
  - Leukopenia [Recovered/Resolved]
  - Arthralgia [Recovered/Resolved]
  - Vomiting [Unknown]
  - Pyrexia [Recovered/Resolved]
  - Speech disorder [Recovered/Resolved]
  - Neutropenia [Unknown]
  - Skin hyperpigmentation [Recovered/Resolved]
  - Visual impairment [Unknown]
  - Hyperkalaemia [Recovered/Resolved]
  - Leukopenia [Unknown]
  - Panniculitis [Recovered/Resolved]
  - Depressed level of consciousness [Recovered/Resolved]
  - Arthralgia [Recovered/Resolved]
  - Keratosis pilaris [Recovered/Resolved]
  - Headache [Recovered/Resolved]
  - Influenza like illness [Recovered/Resolved]
  - Pain in extremity [Unknown]

NARRATIVE: CASE EVENT DATE: 20151217
